FAERS Safety Report 6378476-2 (Version None)
Quarter: 2009Q3

REPORT INFORMATION
  Report Type: 
  Country: None (occurrence: None)
  Receive Date: 20090928
  Receipt Date: 20090916
  Transmission Date: 20100115
  Serious: Yes (Other)
  Sender: FDA-Public Use
  Company Number: US-BIOGENIDEC-2009BI030167

PATIENT
  Age: 74 Year
  Sex: Female

DRUGS (1)
  1. TYSABRI [Suspect]
     Indication: MULTIPLE SCLEROSIS
     Route: 042
     Dates: start: 20080424, end: 20090601

REACTIONS (10)
  - CEREBROVASCULAR ACCIDENT [None]
  - COGNITIVE DISORDER [None]
  - DYSARTHRIA [None]
  - FATIGUE [None]
  - HAND FRACTURE [None]
  - HEMIPARESIS [None]
  - HYPOAESTHESIA [None]
  - MOBILITY DECREASED [None]
  - SKIN LACERATION [None]
  - TRANSIENT ISCHAEMIC ATTACK [None]
